FAERS Safety Report 5248666-0 (Version None)
Quarter: 2007Q1

REPORT INFORMATION
  Report Type: 
  Country: None (occurrence: None)
  Receive Date: 20070227
  Receipt Date: 20070227
  Transmission Date: 20070707
  Serious: Yes (Hospitalization)
  Sender: FDA-Public Use
  Company Number: None

PATIENT
  Sex: Male
  Weight: 79.9 kg

DRUGS (3)
  1. FLUOROURACIL [Suspect]
     Dates: start: 20070130, end: 20070130
  2. LEUCOVORIN CALCIUM [Suspect]
     Dates: end: 20070130
  3. ELOXATIN [Suspect]
     Dates: start: 20070130

REACTIONS (2)
  - DEEP VEIN THROMBOSIS [None]
  - PULMONARY EMBOLISM [None]
